FAERS Safety Report 7570848-3 (Version None)
Quarter: 2011Q2

REPORT INFORMATION
  Report Type: 
  Country: None (occurrence: None)
  Receive Date: 20110624
  Receipt Date: 20110610
  Transmission Date: 20111010
  Serious: Yes (Disabling, Other)
  Sender: FDA-Public Use
  Company Number: JP-CELGENEUS-087-CCAZA-11041710

PATIENT
  Age: 83 Year
  Sex: Male

DRUGS (7)
  1. MAGMITT [Concomitant]
     Dosage: 1.5 GRAM
     Route: 048
  2. LASIX [Concomitant]
     Dosage: 20 MILLIGRAM
     Route: 048
     Dates: start: 20110301
  3. LASIX [Concomitant]
     Dosage: 40 MILLIGRAM
     Route: 048
  4. AZACITIDINE [Suspect]
     Indication: MYELODYSPLASTIC SYNDROME
     Route: 058
     Dates: start: 20110314, end: 20110318
  5. AZACITIDINE [Suspect]
     Dosage: 110 MILLIGRAM
     Route: 058
     Dates: start: 20110411, end: 20110412
  6. MAGMITT [Concomitant]
     Dosage: 2 GRAM
     Route: 048
     Dates: start: 20110402
  7. OLOPATADINE HCL [Concomitant]
     Dosage: 10 MILLIGRAM
     Route: 048
     Dates: start: 20110410, end: 20110523

REACTIONS (6)
  - BLOOD ALKALINE PHOSPHATASE INCREASED [None]
  - BLOOD LACTATE DEHYDROGENASE INCREASED [None]
  - CONSTIPATION [None]
  - DRUG ERUPTION [None]
  - ASPARTATE AMINOTRANSFERASE INCREASED [None]
  - HEPATIC FUNCTION ABNORMAL [None]
